FAERS Safety Report 6016788-2 (Version None)
Quarter: 2008Q4

REPORT INFORMATION
  Report Type: 
  Country: None (occurrence: None)
  Receive Date: 20081222
  Receipt Date: 20081222
  Transmission Date: 20090506
  Serious: Yes (Other)
  Sender: FDA-Public Use
  Company Number: A0761369A

PATIENT
  Age: 41 Year

DRUGS (2)
  1. LAMOTRIGINE [Suspect]
     Indication: DEPRESSION
     Dosage: 200MG PER DAY
     Route: 048
     Dates: end: 20080918
  2. ZOLOFT [Concomitant]
     Dosage: 100MG PER DAY

REACTIONS (3)
  - DRUG EXPOSURE DURING PREGNANCY [None]
  - STILLBIRTH [None]
  - UMBILICAL CORD AROUND NECK [None]
